FAERS Safety Report 4504097-X (Version None)
Quarter: 2004Q4

REPORT INFORMATION
  Report Type: 
  Country: None (occurrence: None)
  Receive Date: 20041115
  Receipt Date: 20041105
  Transmission Date: 20050328
  Serious: Yes (Other)
  Sender: FDA-Public Use
  Company Number: K200401717

PATIENT
  Age: 55 Year
  Sex: Female
  Weight: 97.5 kg

DRUGS (2)
  1. LEVOXYL [Suspect]
     Indication: HYPOTHYROIDISM
     Dosage: 100 MCG, QD, ORAL
     Route: 048
     Dates: start: 20041104
  2. MULTIVITAMIN (MULTIVITAMINS NOS) [Concomitant]

REACTIONS (3)
  - MEDICATION ERROR [None]
  - SENSATION OF FOREIGN BODY [None]
  - THROAT IRRITATION [None]
